FAERS Safety Report 19648099 (Version 1)
Quarter: 2021Q3

REPORT INFORMATION
  Report Type: Spontaneous
  Country: US (occurrence: US)
  Receive Date: 20210803
  Receipt Date: 20210803
  Transmission Date: 20211014
  Serious: Yes (Hospitalization)
  Sender: FDA-Public Use
  Company Number: US-DENDREON PHARMACEUTICAL LLC-2021DEN000205

PATIENT

DRUGS (12)
  1. PROVENGE [Suspect]
     Active Substance: SIPULEUCEL-T
     Indication: PROSTATE CANCER METASTATIC
     Dosage: DOSE 1
     Route: 042
     Dates: start: 20210614, end: 20210614
  2. GLIMEPERIDE [Concomitant]
     Active Substance: GLIMEPIRIDE
  3. TAMSULOSIN [Concomitant]
     Active Substance: TAMSULOSIN
  4. METFORMIN [Concomitant]
     Active Substance: METFORMIN HYDROCHLORIDE
  5. PANTOPRAZOLE [Concomitant]
     Active Substance: PANTOPRAZOLE
  6. DENOSUMAB [Concomitant]
     Active Substance: DENOSUMAB
  7. ENZALUTAMIDE [Concomitant]
     Active Substance: ENZALUTAMIDE
  8. LISINOPRIL. [Concomitant]
     Active Substance: LISINOPRIL
  9. DEGARELIX ACETATE [Concomitant]
     Active Substance: DEGARELIX ACETATE
  10. ATORVASTATIN [Concomitant]
     Active Substance: ATORVASTATIN
  11. PIOGLITAZONE. [Concomitant]
     Active Substance: PIOGLITAZONE
  12. PROVENGE [Suspect]
     Active Substance: SIPULEUCEL-T
     Dosage: DOSE 2
     Route: 041
     Dates: start: 20210628, end: 20210628

REACTIONS (1)
  - Hypoglycaemia [Recovering/Resolving]

NARRATIVE: CASE EVENT DATE: 20210726
